FAERS Safety Report 7087228-X (Version None)
Quarter: 2010Q4

REPORT INFORMATION
  Report Type: 
  Country: None (occurrence: None)
  Receive Date: 20101107
  Receipt Date: 20100616
  Transmission Date: 20110411
  Serious: Yes (Death)
  Sender: FDA-Public Use
  Company Number: PHHO2010US16431

PATIENT

DRUGS (2)
  1. STI571/CGP57148B T35717+CAPS [Suspect]
     Indication: GASTROINTESTINAL STROMAL TUMOUR
     Dosage: 600 MG, QD
     Route: 048
     Dates: start: 20040528, end: 20040627
  2. STI571/CGP57148B T35717+CAPS [Suspect]
     Dosage: 800 MG, QD
     Route: 048
     Dates: start: 20040628, end: 20041110

REACTIONS (1)
  - DEATH [None]
